FAERS Safety Report 8131067-5 (Version None)
Quarter: 2012Q1

REPORT INFORMATION
  Report Type: 
  Country: None (occurrence: None)
  Receive Date: 20120209
  Receipt Date: 20120209
  Transmission Date: 20120608
  Serious: Yes (Life-Threatening, Hospitalization, Disabling)
  Sender: FDA-Public Use
  Company Number: None

PATIENT
  Sex: Male
  Weight: 93.8946 kg

DRUGS (3)
  1. AMLODIPINE BESYLATE [Suspect]
     Indication: HYPERTENSION
     Dosage: 5MG DAILY ORAL
     Route: 048
     Dates: start: 20110512, end: 20110610
  2. METHYLPREDNISOLONE [Suspect]
     Indication: ASTHENIA
     Dosage: 4MG 1 WEEK ORAL
     Route: 048
     Dates: start: 20110401, end: 20110408
  3. METHYLPREDNISOLONE [Suspect]
     Indication: BONE PAIN
     Dosage: 4MG 1 WEEK ORAL
     Route: 048
     Dates: start: 20110401, end: 20110408

REACTIONS (17)
  - PRURITUS [None]
  - VISUAL IMPAIRMENT [None]
  - HEADACHE [None]
  - BONE PAIN [None]
  - MUSCULOSKELETAL PAIN [None]
  - OROPHARYNGEAL PAIN [None]
  - GASTROINTESTINAL HAEMORRHAGE [None]
  - HEMIPARESIS [None]
  - DRY SKIN [None]
  - ABDOMINAL DISCOMFORT [None]
  - SLEEP DISORDER [None]
  - MYALGIA [None]
  - ARTHRALGIA [None]
  - PAIN [None]
  - EYE PAIN [None]
  - BACK PAIN [None]
  - COUGH [None]
